FAERS Safety Report 15895373 (Version 1)
Quarter: 2019Q1

REPORT INFORMATION
  Report Type: Spontaneous
  Country: US (occurrence: US)
  Receive Date: 20190131
  Receipt Date: 20190131
  Transmission Date: 20190417
  Serious: No
  Sender: FDA-Public Use
  Company Number: US-TEVA-2019-US-996014

PATIENT
  Sex: Female

DRUGS (1)
  1. EXTENDED-RELEASE LAMOTRIGINE TABLETS [Suspect]
     Active Substance: LAMOTRIGINE
     Route: 065

REACTIONS (2)
  - Abdominal discomfort [Unknown]
  - Product substitution issue [Unknown]
